FAERS Safety Report 16667906 (Version 1)
Quarter: 2020Q3

REPORT INFORMATION
  Report Type: Report from Study
  Country: PL (occurrence: PL)
  Receive Date: 20190805
  Receipt Date: 20190805
  Transmission Date: 20201105
  Serious: Yes (Life-Threatening, Hospitalization)
  Sender: FDA-Public Use
  Company Number: PL-JNJFOC-20181138247

PATIENT
  Age: 81 Year
  Sex: Female
  Weight: 75.5 kg

DRUGS (3)
  1. PLACEBO [Suspect]
     Active Substance: UNSPECIFIED INGREDIENT
     Indication: MANTLE CELL LYMPHOMA
     Dosage: MEDICATION KIT NUMBERS: 89874, 88798
     Route: 048
     Dates: start: 20140402, end: 20181127
  2. RITUXIMAB. [Suspect]
     Active Substance: RITUXIMAB
     Indication: MANTLE CELL LYMPHOMA
     Dosage: AS PER PROTOCOL?MEDICATION KIT NUMBERS 34967, 19020?01, 19020?02
     Route: 042
     Dates: start: 20140401, end: 20160121
  3. BENDAMUSTINE HYDROCHLORIDE. [Suspect]
     Active Substance: BENDAMUSTINE HYDROCHLORIDE
     Indication: MANTLE CELL LYMPHOMA
     Dosage: AS PER PROTOCOL?MEDICATION KIT NUMBERS: 11855?04, 11855?05
     Route: 042
     Dates: start: 20140401, end: 20140820

REACTIONS (1)
  - Adenocarcinoma of colon [Not Recovered/Not Resolved]

NARRATIVE: CASE EVENT DATE: 20181126
